FAERS Safety Report 8947900 (Version 2)
Quarter: 2013Q3

REPORT INFORMATION
  Report Type: Spontaneous
  Country: US (occurrence: US)
  Receive Date: 20121204
  Receipt Date: 20130723
  Transmission Date: 20140515
  Serious: Yes (Death, Congenital Anomaly, Other)
  Sender: FDA-Public Use
  Company Number: US-PFIZER INC-2012300330

PATIENT
  Sex: Female

DRUGS (11)
  1. ZOLOFT [Suspect]
     Indication: DEPRESSION
     Dosage: 100 MG, UNK
     Route: 064
     Dates: start: 20110119
  2. NITROFURANTOIN [Concomitant]
     Dosage: UNK
     Route: 064
  3. ZOFRAN [Concomitant]
     Dosage: UNK
     Route: 064
  4. WELLBUTRIN [Concomitant]
     Indication: BIPOLAR DISORDER
     Dosage: 100 MG, UNK
     Route: 064
  5. PRENATAL VITAMINS [Concomitant]
     Dosage: UNK
     Route: 064
     Dates: start: 20110119
  6. IBUPROFEN [Concomitant]
     Indication: PAIN
     Dosage: 400 TO 800MG EVERY 6 HOURS
     Route: 064
     Dates: start: 20110119
  7. FOLIC ACID [Concomitant]
     Dosage: 0.4 MG, UNK
     Route: 064
     Dates: start: 20110119
  8. METOCLOPRAMIDE [Concomitant]
     Dosage: 10 MG, UNK
     Route: 064
     Dates: start: 20110210
  9. TYLENOL [Concomitant]
     Dosage: 325 MG, UNK
     Route: 064
     Dates: start: 20110403
  10. AMBIEN [Concomitant]
     Dosage: 5 MG AT BED TIME
     Route: 064
     Dates: start: 20110705
  11. BRETHINE [Concomitant]
     Dosage: 0.25 MG, UNK
     Route: 064
     Dates: start: 20110707

REACTIONS (10)
  - Maternal exposure timing unspecified [Fatal]
  - Right ventricular hypertrophy [Fatal]
  - Pulmonary hypertension [Fatal]
  - Cleft lip [Fatal]
  - Cleft palate [Fatal]
  - Ventricular septal defect [Fatal]
  - Patent ductus arteriosus [Fatal]
  - Atrial septal defect [Fatal]
  - Polydactyly [Fatal]
  - Foetal growth restriction [Unknown]
